FAERS Safety Report 13658618 (Version 1)
Quarter: 2017Q2

REPORT INFORMATION
  Report Type: Spontaneous
  Country: US (occurrence: US)
  Receive Date: 20170615
  Receipt Date: 20170615
  Transmission Date: 20170830
  Serious: Yes (Disabling)
  Sender: FDA-Public Use
  Company Number: None

PATIENT
  Age: 62 Year
  Sex: Female
  Weight: 86.4 kg

DRUGS (3)
  1. SENOKOT [Concomitant]
     Active Substance: SENNOSIDES
  2. MULTIVITAMINS [Concomitant]
     Active Substance: VITAMINS
  3. LEVOFLOXACIN. [Suspect]
     Active Substance: LEVOFLOXACIN
     Indication: BRONCHITIS
     Dosage: ?          QUANTITY:1 TABLET(S);?
     Route: 048
     Dates: start: 20170514, end: 20170518

REACTIONS (2)
  - Abasia [None]
  - Photosensitivity reaction [None]

NARRATIVE: CASE EVENT DATE: 20170514
